FAERS Safety Report 17820385 (Version 4)
Quarter: 2020Q3

REPORT INFORMATION
  Report Type: Spontaneous
  Country: US (occurrence: US)
  Receive Date: 20200525
  Receipt Date: 20200914
  Transmission Date: 20201102
  Serious: No
  Sender: FDA-Public Use
  Company Number: US-HTU-2020US020519

PATIENT
  Sex: Female

DRUGS (7)
  1. LIPITOR [Concomitant]
     Active Substance: ATORVASTATIN CALCIUM
  2. TARGRETIN [Concomitant]
     Active Substance: BEXAROTENE
  3. SYNTHROID [Concomitant]
     Active Substance: LEVOTHYROXINE SODIUM
  4. DOXEPIN HCL [Concomitant]
     Active Substance: DOXEPIN HYDROCHLORIDE
  5. VALCHLOR [Suspect]
     Active Substance: MECHLORETHAMINE
     Indication: CUTANEOUS T-CELL LYMPHOMA
     Dosage: UNK, 3/WEEK
     Route: 061
  6. PROTOPIC [Concomitant]
     Active Substance: TACROLIMUS
  7. CLOBETASOL [Concomitant]
     Active Substance: CLOBETASOL
     Dosage: UNK, BID

REACTIONS (4)
  - Application site rash [Recovered/Resolved]
  - Application site swelling [Not Recovered/Not Resolved]
  - Off label use [Unknown]
  - Application site discolouration [Not Recovered/Not Resolved]
